FAERS Safety Report 5829209-7 (Version None)
Quarter: 2008Q2

REPORT INFORMATION
  Report Type: 
  Country: None (occurrence: None)
  Receive Date: 20080601
  Receipt Date: 20080206
  Transmission Date: 20081010
  Serious: No
  Sender: FDA-Public Use
  Company Number: US200802001558

PATIENT
  Age: 39 Year
  Sex: Female

DRUGS (7)
  1. BYETTA [Suspect]
     Indication: TYPE 2 DIABETES MELLITUS
     Dosage: 10 UG, 2/D, SUBCUTANEOUS
     Route: 058
  2. EXENATIDE 10MCG PEN, DISPOSABLE DEVICE (EXENATIDE PEN (10MCG)) PEN,DIS [Concomitant]
  3. HUMALOG [Concomitant]
  4. PRANDIN /USA/ (REPAGLINIDE) [Concomitant]
  5. METFORMIN HCL [Concomitant]
  6. AMARYL [Concomitant]
  7. AVANDIA [Concomitant]

REACTIONS (1)
  - DRUG PRESCRIBING ERROR [None]
